FAERS Safety Report 5151299-8 (Version None)
Quarter: 2006Q4

REPORT INFORMATION
  Report Type: 
  Country: None (occurrence: None)
  Receive Date: 20061115
  Receipt Date: 20051024
  Transmission Date: 20070319
  Serious: Yes (Hospitalization)
  Sender: FDA-Public Use
  Company Number: US-GLAXOSMITHKLINE-A0579638A

PATIENT
  Age: 17 Year
  Sex: Male

DRUGS (2)
  1. PAXIL [Suspect]
     Indication: ANXIETY
     Dosage: 20MG UNKNOWN
     Route: 048
     Dates: start: 20030101, end: 20040830
  2. PAXIL CR [Suspect]
     Indication: EMOTIONAL DISORDER
     Route: 048
     Dates: start: 20040722, end: 20040801

REACTIONS (4)
  - EMOTIONAL DISTRESS [None]
  - SKIN LACERATION [None]
  - SUICIDAL IDEATION [None]
  - SUICIDE ATTEMPT [None]
